FAERS Safety Report 5296331-6 (Version None)
Quarter: 2007Q2

REPORT INFORMATION
  Report Type: 
  Country: None (occurrence: None)
  Receive Date: 20070413
  Receipt Date: 20070402
  Transmission Date: 20071010
  Serious: Yes (Hospitalization, Other)
  Sender: FDA-Public Use
  Company Number: HQWYE340121MAR07

PATIENT
  Age: 59 Year
  Sex: Female

DRUGS (8)
  1. EFFEXOR XR [Suspect]
     Indication: DEPRESSION
     Route: 048
  2. MAXIPIME [Concomitant]
     Dosage: UNKNOWN
     Dates: start: 20070217
  3. REMERON [Concomitant]
     Dosage: UNKNOWN DOSE AT HS
  4. OXYCONTIN [Concomitant]
     Indication: PAIN
  5. PERCOCET [Concomitant]
     Indication: PAIN
     Dosage: UNKNOWN DOSE AS NEEDED
  6. AMBIEN [Concomitant]
     Dosage: UNKNOWN DOSE AT HS
  7. ACYCLOVIR [Concomitant]
     Dosage: UNKNOWN
     Dates: start: 20070217
  8. VFEND [Concomitant]
     Dosage: UNKNOWN
     Dates: start: 20070217

REACTIONS (8)
  - ALANINE AMINOTRANSFERASE INCREASED [None]
  - ASPARTATE AMINOTRANSFERASE INCREASED [None]
  - HALLUCINATION [None]
  - MENTAL STATUS CHANGES [None]
  - NERVOUSNESS [None]
  - NEUTROPENIA [None]
  - PANCYTOPENIA [None]
  - TREMOR [None]
